FAERS Safety Report 15578499 (Version 1)
Quarter: 2018Q4

REPORT INFORMATION
  Report Type: Other
  Country: RU (occurrence: RU)
  Receive Date: 20181102
  Receipt Date: 20181102
  Transmission Date: 20190205
  Serious: No
  Sender: FDA-Public Use
  Company Number: RU-LUPIN PHARMACEUTICALS INC.-2018-03718

PATIENT
  Age: 95 Year
  Sex: Male
  Weight: 75 kg

DRUGS (15)
  1. CEFAXONE [Suspect]
     Active Substance: CEFTRIAXONE
     Indication: URINARY TRACT INFECTION
     Dosage: 2 GM, QD
     Route: 030
     Dates: start: 20111103
  2. DOXAZOSIN [Concomitant]
     Active Substance: DOXAZOSIN\DOXAZOSIN MESYLATE
     Indication: BENIGN PROSTATIC HYPERPLASIA
     Dosage: UNK
     Route: 048
     Dates: start: 20111031, end: 20111103
  3. ALLAPININ                          /01733902/ [Concomitant]
     Indication: ARRHYTHMIA
  4. FURAGIN                            /00356801/ [Concomitant]
     Indication: PROSTATITIS
     Dosage: UNK
     Route: 048
     Dates: start: 20111102, end: 20111104
  5. ALLAPININ                          /01733902/ [Concomitant]
     Indication: CORONARY ARTERY DISEASE
     Dosage: UNK
     Route: 048
     Dates: start: 20111031, end: 20111103
  6. DOXAZOSIN [Concomitant]
     Active Substance: DOXAZOSIN\DOXAZOSIN MESYLATE
     Indication: PROSTATITIS
  7. DIGOXIN. [Concomitant]
     Active Substance: DIGOXIN
     Indication: CORONARY ARTERY DISEASE
     Dosage: UNK
     Route: 042
     Dates: start: 20111103, end: 20111103
  8. DIGOXIN. [Concomitant]
     Active Substance: DIGOXIN
     Indication: HEART RATE IRREGULAR
  9. FURAGIN                            /00356801/ [Concomitant]
     Indication: BENIGN PROSTATIC HYPERPLASIA
  10. ATENOLOL. [Concomitant]
     Active Substance: ATENOLOL
     Indication: CORONARY ARTERY DISEASE
     Dosage: UNK
     Route: 048
     Dates: start: 20111103
  11. RIMECOR [Concomitant]
     Indication: CORONARY ARTERY DISEASE
     Dosage: UNK
     Route: 048
     Dates: start: 20111031, end: 20111104
  12. FURAGIN                            /00356801/ [Concomitant]
     Indication: URINARY TRACT INFECTION
  13. ATENOLOL. [Concomitant]
     Active Substance: ATENOLOL
     Indication: HEART RATE IRREGULAR
  14. LIDOCAINE. [Concomitant]
     Active Substance: LIDOCAINE
     Indication: ANTIBIOTIC THERAPY
     Dosage: UNK
     Route: 030
     Dates: start: 20111103, end: 20111103
  15. ACECARDOL [Concomitant]
     Active Substance: ASPIRIN
     Indication: CORONARY ARTERY DISEASE
     Dosage: UNK
     Route: 048
     Dates: start: 20111031, end: 20111102

REACTIONS (1)
  - Dermatitis allergic [Recovered/Resolved]

NARRATIVE: CASE EVENT DATE: 20111104
